FAERS Safety Report 5706626-7 (Version None)
Quarter: 2008Q2

REPORT INFORMATION
  Report Type: 
  Country: None (occurrence: None)
  Receive Date: 20080414
  Receipt Date: 20080403
  Transmission Date: 20081010
  Serious: Yes (Other)
  Sender: FDA-Public Use
  Company Number: GXBR2008US00677

PATIENT
  Age: 44 Year
  Sex: Female
  Weight: 68 kg

DRUGS (4)
  1. METOPROLOL SUCCINATE [Suspect]
     Indication: HEART RATE IRREGULAR
     Dosage: 25 MG, QD, ORAL
     Route: 048
     Dates: start: 20070911, end: 20071106
  2. CLONAZEPAM [Concomitant]
  3. MULTIVITAMINS (ASCORBIC ACID, ERGOCALCIFEROL, FOLIC ACID, NICOTINAMIDE [Concomitant]
  4. CALCIUM (CALCIUM) [Concomitant]

REACTIONS (3)
  - AFFECT LABILITY [None]
  - DEPRESSION [None]
  - SUICIDE ATTEMPT [None]
